FAERS Safety Report 19514475 (Version 1)
Quarter: 2021Q3

REPORT INFORMATION
  Report Type: Report from Study
  Country: US (occurrence: US)
  Receive Date: 20210709
  Receipt Date: 20210709
  Transmission Date: 20211014
  Serious: Yes (Other)
  Sender: FDA-Public Use
  Company Number: US-ASTRAZENECA-2021A589587

PATIENT
  Sex: Male

DRUGS (1)
  1. TAGRISSO [Suspect]
     Active Substance: OSIMERTINIB
     Route: 048

REACTIONS (8)
  - Thrombophlebitis superficial [Unknown]
  - Weight decreased [Unknown]
  - Peripheral swelling [Unknown]
  - Fatigue [Unknown]
  - Muscle atrophy [Unknown]
  - Pulmonary thrombosis [Unknown]
  - Insomnia [Unknown]
  - Dyspnoea [Unknown]
